FAERS Safety Report 4345785-8 (Version None)
Quarter: 2004Q2

REPORT INFORMATION
  Report Type: 
  Country: None (occurrence: None)
  Receive Date: 20040421
  Receipt Date: 19960829
  Transmission Date: 20050107
  Serious: Yes (Hospitalization)
  Sender: FDA-Public Use
  Company Number: KURZ 00024

PATIENT
  Age: 59 Year
  Sex: Female

DRUGS (1)
  1. POVIDONE IODINE [Suspect]
     Dosage: TID

REACTIONS (6)
  - BURNS THIRD DEGREE [None]
  - GENITAL DISORDER FEMALE [None]
  - PRURITUS [None]
  - SKIN DISCOLOURATION [None]
  - SKIN NECROSIS [None]
  - VULVAL DISORDER [None]
